FAERS Safety Report 17527800 (Version 1)
Quarter: 2020Q1

REPORT INFORMATION
  Report Type: Report from Study
  Country: US (occurrence: US)
  Receive Date: 20200311
  Receipt Date: 20200311
  Transmission Date: 20200409
  Serious: No
  Sender: FDA-Public Use
  Company Number: US-KYOWAKIRIN-2020BKK003580

PATIENT

DRUGS (1)
  1. GRANISETRON [Suspect]
     Active Substance: GRANISETRON
     Indication: PROPHYLAXIS OF NAUSEA AND VOMITING
     Dosage: PLACE THE PATCH THE DAY AFTER CHEMO AND LEAVE FOR 7 DAYS
     Route: 065
     Dates: start: 20191127, end: 20191129

REACTIONS (3)
  - Dyspnoea [Unknown]
  - Inappropriate schedule of product administration [Recovered/Resolved]
  - Headache [Unknown]

NARRATIVE: CASE EVENT DATE: 201911
